FAERS Safety Report 8281259-X (Version None)
Quarter: 2012Q2

REPORT INFORMATION
  Report Type: 
  Country: None (occurrence: None)
  Receive Date: 20120413
  Receipt Date: 20120402
  Transmission Date: 20120825
  Serious: Yes (Other)
  Sender: FDA-Public Use
  Company Number: ES-PAR PHARMACEUTICAL, INC-2012SCPR004286

PATIENT

DRUGS (1)
  1. CABERGOLINE [Suspect]
     Indication: PROLACTINOMA
     Dosage: 0.5 MG, BIWEEKLY
     Route: 065

REACTIONS (4)
  - MUSCULOSKELETAL STIFFNESS [None]
  - PNEUMOCEPHALUS [None]
  - INTRACRANIAL PRESSURE INCREASED [None]
  - URINARY INCONTINENCE [None]
